FAERS Safety Report 20052594 (Version 5)
Quarter: 2022Q2

REPORT INFORMATION
  Report Type: Report from Study
  Country: US (occurrence: US)
  Receive Date: 20211110
  Receipt Date: 20220519
  Transmission Date: 20220720
  Serious: No
  Sender: FDA-Public Use
  Company Number: US-NOVARTISTESTPH-NVSC2021US253829

PATIENT
  Sex: Female

DRUGS (1)
  1. COSENTYX [Suspect]
     Active Substance: SECUKINUMAB
     Indication: Product used for unknown indication
     Dosage: 150 MG, UNKNOWN
     Route: 058
     Dates: start: 202110

REACTIONS (7)
  - Psoriasis [Unknown]
  - Pain [Not Recovered/Not Resolved]
  - Rash [Unknown]
  - Back pain [Unknown]
  - Insomnia [Unknown]
  - Meniscus injury [Unknown]
  - Product dose omission issue [Unknown]
